FAERS Safety Report 12109400 (Version 1)
Quarter: 2016Q1

REPORT INFORMATION
  Report Type: Spontaneous
  Country: US (occurrence: None)
  Receive Date: 20160222
  Receipt Date: 20160222
  Transmission Date: 20160526
  Serious: Yes (Hospitalization)
  Sender: FDA-Public Use
  Company Number: None

PATIENT
  Age: 34 Year
  Sex: Female

DRUGS (18)
  1. ACETAMINOPHEN. [Concomitant]
     Active Substance: ACETAMINOPHEN
  2. ASPIRIN. [Concomitant]
     Active Substance: ASPIRIN
  3. CLONAZEPAM. [Concomitant]
     Active Substance: CLONAZEPAM
  4. TRETINOIN. [Concomitant]
     Active Substance: TRETINOIN
  5. VALGANCICLOVIR [Concomitant]
     Active Substance: VALGANCICLOVIR
  6. PRAVASTATIN [Concomitant]
     Active Substance: PRAVASTATIN\PRAVASTATIN SODIUM
  7. TACROLIMUS. [Concomitant]
     Active Substance: TACROLIMUS
  8. LANSOPRAZOLE. [Concomitant]
     Active Substance: LANSOPRAZOLE
  9. INSULIN [Concomitant]
     Active Substance: INSULIN NOS
  10. TACROLIMUS. [Suspect]
     Active Substance: TACROLIMUS
     Indication: IMMUNOSUPPRESSION
     Route: 048
     Dates: start: 20150813
  11. GABAPENTIN. [Concomitant]
     Active Substance: GABAPENTIN
  12. MULTIVITAMIN [Concomitant]
     Active Substance: VITAMINS
  13. NIFEDIPINE. [Concomitant]
     Active Substance: NIFEDIPINE
  14. OXYCODONE [Concomitant]
     Active Substance: OXYCODONE
  15. PREDNISONE. [Concomitant]
     Active Substance: PREDNISONE
  16. SULFAMETHEOXAZOLE/TRIMETHOPRIM [Concomitant]
  17. DOCUSATE [Concomitant]
     Active Substance: DOCUSATE
  18. METHADONE [Concomitant]
     Active Substance: METHADONE HYDROCHLORIDE

REACTIONS (2)
  - Acute kidney injury [None]
  - Leukopenia [None]

NARRATIVE: CASE EVENT DATE: 20151119
